FAERS Safety Report 6910537-9 (Version None)
Quarter: 2010Q3

REPORT INFORMATION
  Report Type: 
  Country: None (occurrence: None)
  Receive Date: 20100806
  Receipt Date: 20100802
  Transmission Date: 20110219
  Serious: Yes (Life-Threatening, Hospitalization)
  Sender: FDA-Public Use
  Company Number: PHHO2008NO10664

PATIENT
  Weight: 84 kg

DRUGS (3)
  1. MYCOPHENOLATE MOFETIL [Suspect]
     Indication: HEART TRANSPLANT
     Dosage: 1500 MG BID
     Route: 048
     Dates: start: 20080321
  2. SANDIMMUNE [Suspect]
     Indication: HEART TRANSPLANT
     Dosage: 150MGX2
     Route: 048
     Dates: start: 20080321
  3. STEROIDS NOS [Concomitant]
     Indication: HEART TRANSPLANT
     Dosage: UNK

REACTIONS (4)
  - CONFUSIONAL STATE [None]
  - FALL [None]
  - MULTIPLE FRACTURES [None]
  - SYNCOPE [None]
